FAERS Safety Report 5074802-5 (Version None)
Quarter: 2006Q3

REPORT INFORMATION
  Report Type: 
  Country: None (occurrence: None)
  Receive Date: 20060804
  Receipt Date: 20060726
  Transmission Date: 20061208
  Serious: Yes (Hospitalization, Other)
  Sender: FDA-Public Use
  Company Number: 2006-07-0255

PATIENT
  Age: 39 Year
  Sex: Female

DRUGS (15)
  1. PEG-INTRON [Suspect]
     Indication: HEPATITIS C
     Dosage: 0.5-0.4 ML
     Dates: start: 20060428
  2. RIBASPHERE [Suspect]
     Indication: HEPATITIS C
     Dosage: 600-300 MG QD ORAL
     Route: 048
     Dates: start: 20060428
  3. AMITRIPTYLINE HCL [Concomitant]
  4. BENZTROPINE MESYLATE TABLETS [Concomitant]
  5. COREG [Concomitant]
  6. CYMBALTA (DULOXETINE HCL) [Concomitant]
  7. GABITRIL FILMTAB TABLETS [Concomitant]
  8. LITHIUM CARBONATE EXTENDED RELEASE TABLET [Concomitant]
  9. PERHENAZINE TABLETS [Concomitant]
  10. POTASSIUM CHLORIDE [Concomitant]
  11. PROMETHAZINE HYDROCHLORIDE TABLETS [Concomitant]
  12. PROPRANOLOL HYDROCHLORIDE TABLETS [Concomitant]
  13. TOPAMAX [Concomitant]
  14. TOPROL XL EXTENDED RELEASE [Concomitant]
  15. TRAZODONE HYDROCHLORIDE TABLETS [Concomitant]

REACTIONS (9)
  - ALOPECIA [None]
  - AORTIC VALVE DISEASE [None]
  - BLOOD POTASSIUM DECREASED [None]
  - CONVULSION [None]
  - DEHYDRATION [None]
  - DRUG DOSE OMISSION [None]
  - FATIGUE [None]
  - GASTRIC DISORDER [None]
  - VOMITING [None]
